FAERS Safety Report 9812542 (Version 2)
Quarter: 2014Q1

REPORT INFORMATION
  Report Type: Report from Study
  Country: AU (occurrence: AU)
  Receive Date: 20140113
  Receipt Date: 20140113
  Transmission Date: 20141002
  Serious: Yes (Other)
  Sender: FDA-Public Use
  Company Number: AU-BRISTOL-MYERS SQUIBB COMPANY-19945005

PATIENT
  Age: 63 Year
  Sex: Female
  Weight: 57 kg

DRUGS (6)
  1. ORENCIA FOR INJ [Suspect]
     Route: 042
     Dates: start: 20090811
  2. METHOTREXATE [Concomitant]
     Route: 048
  3. FOLIC ACID [Concomitant]
     Route: 048
  4. EZETROL [Concomitant]
     Route: 048
     Dates: start: 20130212
  5. PANADEINE FORTE [Concomitant]
     Dosage: 2 NOCTE
     Route: 048
  6. FISH OIL [Concomitant]
     Route: 048

REACTIONS (1)
  - Humerus fracture [Recovering/Resolving]
